FAERS Safety Report 15434819 (Version 1)
Quarter: 2018Q3

REPORT INFORMATION
  Report Type: Spontaneous
  Country: US (occurrence: US)
  Receive Date: 20180922
  Receipt Date: 20180922
  Transmission Date: 20181010
  Serious: Yes (Hospitalization, Disabling, Other)
  Sender: FDA-Public Use
  Company Number: None

PATIENT
  Age: 30 Year
  Sex: Female

DRUGS (1)
  1. TESTOSTERONE, INJECTION [Suspect]
     Active Substance: TESTOSTERONE
     Indication: TRANSGENDER HORMONAL THERAPY
     Dosage: ?          OTHER FREQUENCY:EVERY 2 WEEKS;?
     Route: 030
     Dates: start: 20151101

REACTIONS (6)
  - Agoraphobia [None]
  - Sympathectomy [None]
  - Anxiety [None]
  - Aggression [None]
  - Anger [None]
  - Suicide attempt [None]

NARRATIVE: CASE EVENT DATE: 20151101
